FAERS Safety Report 22967309 (Version 5)
Quarter: 2025Q1

REPORT INFORMATION
  Report Type: Spontaneous
  Country: US (occurrence: US)
  Receive Date: 20230921
  Receipt Date: 20250128
  Transmission Date: 20250408
  Serious: No
  Sender: PFIZER
  Company Number: US-PFIZER INC-PV202300116229

PATIENT
  Age: 79 Year
  Sex: Female
  Weight: 71.67 kg

DRUGS (3)
  1. IBRANCE [Suspect]
     Active Substance: PALBOCICLIB
     Indication: Malignant nipple neoplasm female
     Route: 048
     Dates: start: 20220929
  2. IBRANCE [Suspect]
     Active Substance: PALBOCICLIB
     Route: 048
  3. OLMESARTAN [Concomitant]
     Active Substance: OLMESARTAN
     Indication: Blood pressure abnormal
     Dosage: UNK, 1X/DAY
     Route: 048

REACTIONS (1)
  - Full blood count decreased [Unknown]
